FAERS Safety Report 14300418 (Version 1)
Quarter: 2017Q4

REPORT INFORMATION
  Report Type: Spontaneous
  Country: PT (occurrence: PT)
  Receive Date: 20171219
  Receipt Date: 20171219
  Transmission Date: 20180321
  Serious: Yes (Hospitalization, Other)
  Sender: FDA-Public Use
  Company Number: PT-WEST-WARD PHARMACEUTICALS CORP.-PT-H14001-17-04927

PATIENT
  Age: 78 Year
  Sex: Male

DRUGS (4)
  1. AZITROMYCIN [Suspect]
     Active Substance: AZITHROMYCIN ANHYDROUS
     Indication: PNEUMONIA PNEUMOCOCCAL
     Dosage: ()
     Route: 065
  2. APIXABAN [Concomitant]
     Active Substance: APIXABAN
     Indication: ATRIAL FIBRILLATION
     Dosage: 5 MG, TWO TIMES A DAY
     Route: 065
  3. AMIODARONE [Suspect]
     Active Substance: AMIODARONE
     Indication: ATRIAL FIBRILLATION
     Dosage: 100 MG, THREE TIMES A WEEK
     Route: 065
  4. APIXABAN [Concomitant]
     Active Substance: APIXABAN
     Indication: PLATELET AGGREGATION INHIBITION
     Route: 065

REACTIONS (10)
  - Pneumonia pneumococcal [Unknown]
  - Drug ineffective [Recovered/Resolved]
  - Pyrexia [Unknown]
  - Respiratory failure [Unknown]
  - Pulmonary alveolar haemorrhage [Recovered/Resolved]
  - Purulent discharge [Unknown]
  - Catheter site haemorrhage [Unknown]
  - Dyspnoea [Unknown]
  - Haemoptysis [Unknown]
  - Productive cough [Unknown]
